FAERS Safety Report 5470238-3 (Version None)
Quarter: 2007Q3

REPORT INFORMATION
  Report Type: 
  Country: None (occurrence: None)
  Receive Date: 20070927
  Receipt Date: 20070918
  Transmission Date: 20080115
  Serious: Yes (Hospitalization)
  Sender: FDA-Public Use
  Company Number: CL-ABBOTT-07P-034-0417406-00

PATIENT
  Age: 37 Year
  Sex: Female

DRUGS (4)
  1. LEVOTHYROXINE SODIUM [Suspect]
     Indication: POST PROCEDURAL HYPOTHYROIDISM
     Dates: start: 20031101
  2. FERROUS SULFATE TAB [Concomitant]
     Indication: IRON DEFICIENCY ANAEMIA
     Dates: start: 20031101
  3. OYSTER SHELL CALCIUM WITH VITAMIN D [Concomitant]
     Indication: HYPOPARATHYROIDISM
     Dosage: ONE DOSE OF 1.125 MG/175 IU
     Dates: start: 20031101
  4. CALCIUM CARBONATE [Concomitant]
     Indication: HYPOPARATHYROIDISM
     Dates: start: 20031101

REACTIONS (1)
  - CARDIAC FAILURE CONGESTIVE [None]
